FAERS Safety Report 10503831 (Version 2)
Quarter: 2014Q4

REPORT INFORMATION
  Report Type: Spontaneous
  Country: US (occurrence: None)
  Receive Date: 20141006
  Receipt Date: 20141106
  Transmission Date: 20150528
  Serious: Yes (Other)
  Sender: FDA-Public Use
  Company Number: ADR-2014-01803

PATIENT
  Age: 55 Year
  Sex: Male

DRUGS (2)
  1. MORPHINE [Suspect]
     Active Substance: MORPHINE
     Indication: MUSCLE SPASTICITY
     Dosage: 1 MG/DAY
  2. LIORESAL [Suspect]
     Active Substance: BACLOFEN
     Indication: MUSCLE SPASTICITY
     Dosage: 109.84MCG/DAY

REACTIONS (4)
  - Feeling abnormal [None]
  - Device failure [None]
  - Asthenia [None]
  - Device damage [None]

NARRATIVE: CASE EVENT DATE: 20140911
